FAERS Safety Report 5525958-9 (Version None)
Quarter: 2007Q4

REPORT INFORMATION
  Report Type: 
  Country: None (occurrence: None)
  Receive Date: 20071126
  Receipt Date: 20071114
  Transmission Date: 20080405
  Serious: Yes (Other)
  Sender: FDA-Public Use
  Company Number: US-PFIZER INC-2007097470

PATIENT
  Sex: Female
  Weight: 81.818 kg

DRUGS (6)
  1. CHANTIX [Suspect]
     Indication: SMOKING CESSATION THERAPY
     Dates: start: 20070901, end: 20070901
  2. NEXIUM [Concomitant]
  3. HYDROCODONE BITARTRATE [Concomitant]
  4. ELAVIL [Concomitant]
  5. XANAX [Concomitant]
  6. ABILIFY [Concomitant]

REACTIONS (7)
  - AGGRESSION [None]
  - AMNESIA [None]
  - DISTURBANCE IN ATTENTION [None]
  - DRY MOUTH [None]
  - INSOMNIA [None]
  - PROGESTERONE DECREASED [None]
  - PSYCHOTIC DISORDER [None]
